FAERS Safety Report 9430991 (Version 2)
Quarter: 2013Q3

REPORT INFORMATION
  Report Type: Report from Study
  Country: BR (occurrence: BR)
  Receive Date: 20130730
  Receipt Date: 20130828
  Transmission Date: 20140515
  Serious: Yes (Hospitalization)
  Sender: FDA-Public Use
  Company Number: BR-ABBOTT-13P-020-1126502-00

PATIENT
  Sex: Female

DRUGS (2)
  1. HUMIRA [Suspect]
     Indication: PSORIASIS
     Dosage: DAY 0
     Route: 058
  2. HUMIRA [Suspect]
     Dosage: DAY 7
     Route: 058

REACTIONS (2)
  - Hypoaesthesia [Unknown]
  - Hypoaesthesia [Unknown]
